FAERS Safety Report 9361664 (Version 1)
Quarter: 2013Q2

REPORT INFORMATION
  Report Type: Spontaneous
  Country: JP (occurrence: JP)
  Receive Date: 20130621
  Receipt Date: 20130621
  Transmission Date: 20140414
  Serious: Yes (Other)
  Sender: FDA-Public Use
  Company Number: JP-ROXANE LABORATORIES, INC.-2013-RO-00985RO

PATIENT
  Age: 1 Year
  Sex: Male

DRUGS (3)
  1. CYCLOPHOSPHAMIDE TABLETS USP [Suspect]
     Indication: ACUTE LYMPHOCYTIC LEUKAEMIA
  2. BUSULFAN [Suspect]
     Indication: ACUTE LYMPHOCYTIC LEUKAEMIA
  3. STEROIDS [Suspect]
     Indication: CHRONIC GRAFT VERSUS HOST DISEASE

REACTIONS (6)
  - Acute lymphocytic leukaemia recurrent [Recovered/Resolved]
  - Chronic graft versus host disease [Not Recovered/Not Resolved]
  - Tooth disorder [Not Recovered/Not Resolved]
  - Dental caries [Recovered/Resolved]
  - Autism spectrum disorder [Unknown]
  - Precocious puberty [Unknown]
